FAERS Safety Report 8936970 (Version 1)
Quarter: 2012Q4

REPORT INFORMATION
  Report Type: 
  Country: US (occurrence: US)
  Receive Date: 20121130
  Receipt Date: 20121130
  Transmission Date: 20130627
  Serious: Yes (Other)
  Sender: FDA-Public Use
  Company Number: US-AMGEN-USASP2012076062

PATIENT
  Age: 48 Year
  Sex: Female

DRUGS (1)
  1. ENBREL [Suspect]
     Indication: RHEUMATOID ARTHRITIS
     Dosage: 50 mg, qwk
     Dates: start: 20120901

REACTIONS (6)
  - Mobility decreased [Unknown]
  - Bone loss [Unknown]
  - Spinal deformity [Unknown]
  - Muscle spasms [Not Recovered/Not Resolved]
  - Fibromyalgia [Unknown]
  - Injection site haemorrhage [Unknown]
